FAERS Safety Report 25174802 (Version 1)
Quarter: 2025Q2

REPORT INFORMATION
  Report Type: Spontaneous
  Country: KR (occurrence: KR)
  Receive Date: 20250408
  Receipt Date: 20250408
  Transmission Date: 20250717
  Serious: Yes (Hospitalization, Other)
  Sender: BAYER
  Company Number: KR-BAYER-2024A151428

PATIENT
  Age: 65 Year
  Sex: Male
  Weight: 74 kg

DRUGS (3)
  1. ULTRAVIST [Suspect]
     Active Substance: IOPROMIDE
     Indication: Computerised tomogram
     Dates: start: 20240826, end: 20240826
  2. ULTRAVIST [Suspect]
     Active Substance: IOPROMIDE
     Indication: Gastroenteritis
  3. ULTRAVIST [Suspect]
     Active Substance: IOPROMIDE
     Indication: Colitis

REACTIONS (25)
  - Urticaria chronic [None]
  - Arthritis [None]
  - Lumbar spinal stenosis [None]
  - Hypoaesthesia [None]
  - Oesophageal ulcer [None]
  - Urinary retention [Recovered/Resolved]
  - Drug eruption [None]
  - Ascites [None]
  - Neuropathy peripheral [None]
  - Skin plaque [None]
  - Pruritus [Not Recovered/Not Resolved]
  - Genital burning sensation [None]
  - Genital discomfort [None]
  - Diarrhoea [None]
  - Contrast media deposition [None]
  - Urticaria [None]
  - Dysuria [Recovered/Resolved]
  - Abdominal pain lower [None]
  - Body tinea [None]
  - Neuralgia [None]
  - Anxiety disorder [None]
  - Pain in extremity [None]
  - Paraesthesia [None]
  - Headache [None]
  - Dizziness [None]

NARRATIVE: CASE EVENT DATE: 20240902
